FAERS Safety Report 4762622-8 (Version None)
Quarter: 2005Q3

REPORT INFORMATION
  Report Type: 
  Country: None (occurrence: None)
  Receive Date: 20050907
  Receipt Date: 20050817
  Transmission Date: 20060218
  Serious: Yes (Hospitalization)
  Sender: FDA-Public Use
  Company Number: JP-GLAXOSMITHKLINE-B0391160A

PATIENT
  Age: 62 Year
  Sex: Female

DRUGS (5)
  1. VALTREX [Suspect]
     Indication: HERPES ZOSTER
     Dosage: 500MG VARIABLE DOSE
     Route: 048
     Dates: start: 20050812, end: 20050813
  2. ALLOPURINOL [Concomitant]
     Route: 048
     Dates: start: 20050812, end: 20050813
  3. ADALAT [Concomitant]
     Indication: HYPERTENSION
     Dosage: 60MG PER DAY
     Route: 048
  4. TANKARU [Concomitant]
     Indication: HYPOCALCAEMIA
     Dosage: 6G PER DAY
     Route: 048
  5. TAKEPRON [Concomitant]
     Indication: GASTRIC ULCER
     Dosage: 15MG PER DAY
     Route: 048

REACTIONS (5)
  - CRYING [None]
  - DEPRESSED LEVEL OF CONSCIOUSNESS [None]
  - DIALYSIS [None]
  - HAEMODIALYSIS [None]
  - OVERDOSE [None]
